FAERS Safety Report 20902971 (Version 2)
Quarter: 2022Q3

REPORT INFORMATION
  Report Type: Spontaneous
  Country: IN (occurrence: IN)
  Receive Date: 20220601
  Receipt Date: 20220927
  Transmission Date: 20221027
  Serious: Yes (Other)
  Sender: FDA-Public Use
  Company Number: IN-PFIZER INC-202200781947

PATIENT
  Age: 63 Year
  Sex: Female

DRUGS (3)
  1. CRIZOTINIB [Suspect]
     Active Substance: CRIZOTINIB
     Dosage: 250 MG, 2X/DAY
     Route: 048
     Dates: start: 20210224
  2. MEGASTY [Concomitant]
     Dosage: 160 MG, 1X/DAY X 10 DAY
  3. ZOLEDRONIC ACID [Concomitant]
     Active Substance: ZOLEDRONIC ACID
     Dosage: 4 MG

REACTIONS (5)
  - Haemoglobin decreased [Unknown]
  - Blood albumin increased [Unknown]
  - Pain in extremity [Recovering/Resolving]
  - Blood creatinine increased [Unknown]
  - Headache [Unknown]
